FAERS Safety Report 7715969-7 (Version None)
Quarter: 2011Q3

REPORT INFORMATION
  Report Type: 
  Country: None (occurrence: None)
  Receive Date: 20110812
  Receipt Date: 20110425
  Transmission Date: 20111222
  Serious: Yes (Hospitalization)
  Sender: FDA-Public Use
  Company Number: MEDI-0012267

PATIENT
  Age: 9 Month
  Sex: Male

DRUGS (3)
  1. ALBUTEROL [Concomitant]
  2. PULMICORT [Concomitant]
  3. SYNAGIS [Suspect]
     Dates: start: 20101216, end: 20101216

REACTIONS (1)
  - RESPIRATORY SYNCYTIAL VIRUS INFECTION [None]
